FAERS Safety Report 15007160 (Version 2)
Quarter: 2018Q2

REPORT INFORMATION
  Report Type: Report from Study
  Country: US (occurrence: US)
  Receive Date: 20180613
  Receipt Date: 20180619
  Transmission Date: 20180711
  Serious: Yes (Hospitalization, Other)
  Sender: FDA-Public Use
  Company Number: US-GILEAD-2018-0343728

PATIENT
  Age: 81 Year
  Sex: Male
  Weight: 82 kg

DRUGS (11)
  1. DICLOFENAC [Concomitant]
     Active Substance: DICLOFENAC
  2. FUROSEMIDE. [Concomitant]
     Active Substance: FUROSEMIDE
  3. ULORIC [Concomitant]
     Active Substance: FEBUXOSTAT
  4. ARANESP [Concomitant]
     Active Substance: DARBEPOETIN ALFA
  5. AMLODIPINE [Concomitant]
     Active Substance: AMLODIPINE BESYLATE
  6. VIAGRA [Concomitant]
     Active Substance: SILDENAFIL CITRATE
  7. LEVOTHYROXINE. [Concomitant]
     Active Substance: LEVOTHYROXINE
  8. LISINOPRIL. [Concomitant]
     Active Substance: LISINOPRIL
  9. WARFARIN [Concomitant]
     Active Substance: WARFARIN
  10. AMBRISENTAN [Suspect]
     Active Substance: AMBRISENTAN
     Indication: PULMONARY ARTERIAL HYPERTENSION
     Dosage: 5 MG, QD
     Route: 065
     Dates: start: 20150414
  11. CIALIS [Concomitant]
     Active Substance: TADALAFIL

REACTIONS (2)
  - Intentional dose omission [Recovered/Resolved]
  - Colon neoplasm [Recovered/Resolved]

NARRATIVE: CASE EVENT DATE: 20180525
